FAERS Safety Report 5927149-6 (Version None)
Quarter: 2008Q4

REPORT INFORMATION
  Report Type: 
  Country: None (occurrence: None)
  Receive Date: 20081022
  Receipt Date: 20081010
  Transmission Date: 20090506
  Serious: Yes (Other)
  Sender: FDA-Public Use
  Company Number: US-PFIZER INC-2008012067

PATIENT
  Sex: Male
  Weight: 99.3 kg

DRUGS (8)
  1. CHANTIX [Interacting]
     Indication: SMOKING CESSATION THERAPY
     Dates: start: 20080101
  2. LITHIUM [Interacting]
  3. KLONOPIN [Interacting]
  4. THORAZINE [Interacting]
  5. BUTALBITAL [Interacting]
  6. WELLBUTRIN [Suspect]
  7. CORGARD [Concomitant]
  8. TOBACCO [Concomitant]

REACTIONS (2)
  - DRUG INTERACTION [None]
  - PARANOIA [None]
